FAERS Safety Report 9887635 (Version 1)
Quarter: 2013Q4

REPORT INFORMATION
  Report Type: Spontaneous
  Country: US (occurrence: None)
  Receive Date: 20131223
  Receipt Date: 20131223
  Transmission Date: 20140711
  Serious: Yes (Other)
  Sender: FDA-Public Use
  Company Number: 217349LEO

PATIENT
  Age: 62 Year
  Sex: Male

DRUGS (1)
  1. PICATO [Suspect]
     Indication: PRECANCEROUS CELLS PRESENT
     Dosage: 1 IN 1 D, ON RIGHT EYELID, CHEEK AND EARLOBE

REACTIONS (4)
  - Eye irritation [None]
  - Ocular hyperaemia [None]
  - Periorbital contusion [None]
  - Eye pruritus [None]
